FAERS Safety Report 4404204-3 (Version None)
Quarter: 2004Q3

REPORT INFORMATION
  Report Type: 
  Country: None (occurrence: None)
  Receive Date: 20040719
  Receipt Date: 20040708
  Transmission Date: 20050211
  Serious: Yes (Hospitalization)
  Sender: FDA-Public Use
  Company Number: 2004-118367-NL

PATIENT
  Age: 32 Year
  Sex: Female

DRUGS (1)
  1. DESOGESTREL AND ETHINYL ESTRADIOL [Suspect]
     Indication: CONTRACEPTION
     Dosage: DF
     Route: 048
     Dates: end: 20030923

REACTIONS (3)
  - CEREBRAL THROMBOSIS [None]
  - HYPOAESTHESIA [None]
  - PARAESTHESIA [None]
